FAERS Safety Report 9704040 (Version 1)
Quarter: 2013Q4

REPORT INFORMATION
  Report Type: Spontaneous
  Country: US (occurrence: None)
  Receive Date: 20131121
  Receipt Date: 20131121
  Transmission Date: 20140711
  Serious: Yes (Hospitalization)
  Sender: FDA-Public Use
  Company Number: None

PATIENT
  Age: 81 Year
  Sex: Male

DRUGS (2)
  1. WARFARIN [Suspect]
     Indication: DEEP VEIN THROMBOSIS
     Route: 048
     Dates: start: 20131104
  2. INSULIN [Suspect]
     Indication: DIABETES MELLITUS
     Dosage: 35 UNITS, AT BEDTIME, SQ
     Dates: start: 20131104

REACTIONS (1)
  - International normalised ratio abnormal [None]
